FAERS Safety Report 22288415 (Version 1)
Quarter: 2023Q2

REPORT INFORMATION
  Report Type: Spontaneous
  Country: GB (occurrence: GB)
  Receive Date: 20230505
  Receipt Date: 20230505
  Transmission Date: 20230722
  Serious: Yes (Hospitalization, Other)
  Sender: FDA-Public Use
  Company Number: None

PATIENT
  Age: 82 Year
  Sex: Male
  Weight: 72 kg

DRUGS (23)
  1. REMDESIVIR [Suspect]
     Active Substance: REMDESIVIR
     Indication: Product used for unknown indication
     Route: 065
     Dates: end: 20230419
  2. ARANESP [Concomitant]
     Active Substance: DARBEPOETIN ALFA
     Dosage: FEW WEEKS AGO
  3. ATORVASTATIN [Concomitant]
     Active Substance: ATORVASTATIN
     Dosage: AT NIGHT = STOPPED DERANGED LFTS
  4. ALFACALCIDOL [Concomitant]
     Active Substance: ALFACALCIDOL
     Dates: end: 20230419
  5. AMOXICILLIN [Concomitant]
     Active Substance: AMOXICILLIN
  6. BECLOMETHASONE DIPROPIONATE [Concomitant]
     Active Substance: BECLOMETHASONE DIPROPIONATE
  7. BISOPROLOL [Concomitant]
     Active Substance: BISOPROLOL
     Dosage: MORNING
     Dates: end: 20230419
  8. CLOPIDOGREL [Concomitant]
     Active Substance: CLOPIDOGREL BISULFATE
     Dates: start: 20230419
  9. DOCUSATE [Concomitant]
     Active Substance: DOCUSATE
     Indication: Constipation
     Dosage: PRN
  10. FOLIC ACID [Concomitant]
     Active Substance: FOLIC ACID
  11. FINASTERIDE [Concomitant]
     Active Substance: FINASTERIDE
  12. FUROSEMIDE [Concomitant]
     Active Substance: FUROSEMIDE
     Dosage: MORNING
  13. ISOSORBIDE MONONITRATE [Concomitant]
     Active Substance: ISOSORBIDE MONONITRATE
     Dosage: ONE AND HALF TABLETS DAILY
  14. LANSOPRAZOLE [Concomitant]
     Active Substance: LANSOPRAZOLE
     Dosage: MORNING
  15. MIRTAZAPINE [Concomitant]
     Active Substance: MIRTAZAPINE
     Dosage: AT NIGHT
  16. SODIUM BICARBONATE [Concomitant]
     Active Substance: SODIUM BICARBONATE
     Dosage: TWO TO BETAKEN THREE TIMES A DAY
  17. TAMSULOSIN [Concomitant]
     Active Substance: TAMSULOSIN
  18. WARFARIN [Concomitant]
     Active Substance: WARFARIN
     Dosage: 4MG MON + THUR, 3MGOTHER DAYS, TARGET INR2-3 FOR PAROXYSMAL AF
  19. ALBUTEROL SULFATE [Concomitant]
     Active Substance: ALBUTEROL SULFATE
  20. BECLOMETHASONE DIPROPIONATE [Concomitant]
     Active Substance: BECLOMETHASONE DIPROPIONATE
     Dosage: 2PU
  21. DERMOL [BENZALKONIUM CHLORIDE;CHLORHEXIDINE HYDROCHLORIDE;ISOPROPYL MY [Concomitant]
     Dosage: ASDIRECTED SOAP SUBSTITUTE 500 ML
  22. NITROGLYCERIN [Concomitant]
     Active Substance: NITROGLYCERIN
  23. SENNA LEAF [Concomitant]
     Active Substance: SENNA LEAF
     Dosage: TWO TO BE TAKEN AT NIGHT IF NEEDED

REACTIONS (1)
  - Liver function test abnormal [Unknown]
